FAERS Safety Report 9454499 (Version 3)
Quarter: 2013Q3

REPORT INFORMATION
  Report Type: Spontaneous
  Country: US (occurrence: US)
  Receive Date: 20130812
  Receipt Date: 20130909
  Transmission Date: 20140515
  Serious: Yes (Other)
  Sender: FDA-Public Use
  Company Number: US-GLAXOSMITHKLINE-A1036615A

PATIENT
  Age: 69 Year
  Sex: Female

DRUGS (5)
  1. ADVAIR [Suspect]
     Indication: WHEEZING
     Dosage: 1PUFF TWICE PER DAY
     Route: 055
  2. VERAPAMIL [Concomitant]
  3. PREMARIN [Concomitant]
  4. NEXIUM [Concomitant]
  5. BABY ASPIRIN [Concomitant]

REACTIONS (2)
  - Choking [Recovered/Resolved]
  - Product quality issue [Unknown]
